FAERS Safety Report 5033966-X (Version None)
Quarter: 2006Q2

REPORT INFORMATION
  Report Type: 
  Country: None (occurrence: None)
  Receive Date: 20060626
  Receipt Date: 20060614
  Transmission Date: 20061013
  Serious: Yes (Death, Other)
  Sender: FDA-Public Use
  Company Number: NSADSS2002041985

PATIENT
  Sex: Female
  Weight: 49.9 kg

DRUGS (3)
  1. REMICADE [Suspect]
     Route: 041
  2. REMICADE [Suspect]
     Indication: CROHN'S DISEASE
     Route: 041
  3. LAMICTAL [Concomitant]
     Indication: CONVULSION

REACTIONS (2)
  - CONVULSION [None]
  - DROWNING [None]
